FAERS Safety Report 12627314 (Version 1)
Quarter: 2016Q3

REPORT INFORMATION
  Report Type: Report from Study
  Country: US (occurrence: US)
  Receive Date: 20160805
  Receipt Date: 20160805
  Transmission Date: 20161109
  Serious: No
  Sender: FDA-Public Use
  Company Number: US-AMGEN-USASL2015100609

PATIENT
  Age: 48 Year
  Sex: Female

DRUGS (1)
  1. NPLATE [Suspect]
     Active Substance: ROMIPLOSTIM
     Indication: PRODUCT USED FOR UNKNOWN INDICATION
     Dosage: UNK
     Route: 065

REACTIONS (6)
  - Gait disturbance [Unknown]
  - Headache [Unknown]
  - Pain [Unknown]
  - Bone pain [Unknown]
  - Arthralgia [Unknown]
  - Musculoskeletal pain [Unknown]
